FAERS Safety Report 16640932 (Version 3)
Quarter: 2019Q3

REPORT INFORMATION
  Report Type: Spontaneous
  Country: BR (occurrence: BR)
  Receive Date: 20190729
  Receipt Date: 20190830
  Transmission Date: 20191004
  Serious: Yes (Hospitalization, Other)
  Sender: FDA-Public Use
  Company Number: BR-BEH-2019104755

PATIENT
  Age: 7 Year
  Sex: Male
  Weight: 24.4 kg

DRUGS (5)
  1. ZOFRAN [Concomitant]
     Active Substance: ONDANSETRON HYDROCHLORIDE
     Dosage: UNK, TOT
     Route: 065
     Dates: start: 20190718, end: 20190718
  2. PREVAX [Concomitant]
     Dosage: IN BOLUS EVERY 6 HOURS (LAST DOSE BEFORE PRIVIGEN WAS AT NOON)
     Route: 040
     Dates: start: 20180718, end: 20180718
  3. PRIVIGEN [Suspect]
     Active Substance: HUMAN IMMUNOGLOBULIN G
     Indication: SECONDARY IMMUNODEFICIENCY
     Dosage: 24 GRAM, QMT
     Route: 042
     Dates: start: 20190718, end: 20190718
  4. METHOTREXATE. [Concomitant]
     Active Substance: METHOTREXATE
     Indication: LEUKAEMIA
     Dosage: UNK, TOT
     Route: 065
     Dates: start: 20190702, end: 20190702
  5. METHOTREXATE. [Concomitant]
     Active Substance: METHOTREXATE
     Dosage: UNK, TOT
     Route: 065
     Dates: start: 20190716, end: 20190716

REACTIONS (8)
  - Pyrexia [Recovered/Resolved]
  - Tremor [Recovered/Resolved]
  - Malaise [Recovered/Resolved]
  - Bacteraemia [Recovered/Resolved]
  - Leukopenia [Recovered/Resolved]
  - Crying [Recovered/Resolved]
  - Product contamination [Recovered/Resolved]
  - Moaning [Recovered/Resolved]

NARRATIVE: CASE EVENT DATE: 201907
